FAERS Safety Report 8642905 (Version 2)
Quarter: 2013Q2

REPORT INFORMATION
  Report Type: Spontaneous
  Country: CO (occurrence: CO)
  Receive Date: 20120629
  Receipt Date: 20130527
  Transmission Date: 20140414
  Serious: Yes (Hospitalization, Other)
  Sender: FDA-Public Use
  Company Number: CO-PFIZER INC-2012152275

PATIENT
  Age: 72 Year
  Sex: Female

DRUGS (10)
  1. LYRICA [Suspect]
     Indication: BACK PAIN
     Dosage: 75 MG, 2X/DAY
     Route: 048
     Dates: start: 2010
  2. LYRICA [Suspect]
     Indication: PAIN IN EXTREMITY
  3. LYRICA [Suspect]
     Indication: BURNING SENSATION
  4. LOSARTAN [Concomitant]
     Indication: HYPERTENSION
     Dosage: 50 MG 4 TIMES PER DAY
     Route: 048
     Dates: start: 1993
  5. NIFEDIPINE [Concomitant]
     Indication: ANGINA PECTORIS
     Dosage: 30 MG EVERY 12 HOURS ORALLY
     Route: 048
     Dates: start: 1993
  6. NIFEDIPINE [Concomitant]
     Indication: HYPERTENSION
  7. HYDROCHLOROTHIAZIDE [Concomitant]
     Indication: URINARY RETENTION
     Dosage: 5 MG, 1X/DAY
     Route: 048
     Dates: start: 1993
  8. HYDROCHLOROTHIAZIDE [Concomitant]
     Indication: HYPERTENSION
  9. TRAMADOL [Concomitant]
     Indication: PAIN
     Dosage: 10 DROPS THREE TIMES PER DAY (10 ML)
  10. ASAWIN [Concomitant]
     Indication: ANTICOAGULANT THERAPY
     Dosage: UNK
     Route: 048

REACTIONS (3)
  - Cervical spinal stenosis [Unknown]
  - Intervertebral disc protrusion [Not Recovered/Not Resolved]
  - Drug ineffective [Not Recovered/Not Resolved]
